FAERS Safety Report 11861015 (Version 9)
Quarter: 2018Q3

REPORT INFORMATION
  Report Type: Spontaneous
  Country: US (occurrence: US)
  Receive Date: 20151222
  Receipt Date: 20180911
  Transmission Date: 20181010
  Serious: Yes (Hospitalization, Other)
  Sender: FDA-Public Use
  Company Number: US-PFIZER INC-2015450967

PATIENT
  Age: 36 Year
  Sex: Female
  Weight: 146.51 kg

DRUGS (4)
  1. LYRICA [Suspect]
     Active Substance: PREGABALIN
     Indication: FIBROMYALGIA
     Dosage: 200 MG, 3X/DAY
     Route: 048
  2. LYRICA [Suspect]
     Active Substance: PREGABALIN
     Indication: NEURALGIA
  3. LYRICA [Suspect]
     Active Substance: PREGABALIN
     Indication: NEUROPATHY PERIPHERAL
     Dosage: 200 MG, 3X/DAY
     Route: 048
     Dates: start: 2008, end: 20180901
  4. LYRICA [Suspect]
     Active Substance: PREGABALIN
     Indication: BURNING SENSATION

REACTIONS (23)
  - Hyperhidrosis [Unknown]
  - Hot flush [Unknown]
  - Injury [Unknown]
  - Quality of life decreased [Unknown]
  - Muscular weakness [Not Recovered/Not Resolved]
  - Neuralgia [Unknown]
  - Loss of personal independence in daily activities [Unknown]
  - Ligament sprain [Unknown]
  - Sepsis [Recovering/Resolving]
  - Intervertebral disc injury [Unknown]
  - Withdrawal syndrome [Unknown]
  - Nausea [Unknown]
  - Asthma [Unknown]
  - Insomnia [Unknown]
  - Headache [Unknown]
  - Limb injury [Unknown]
  - Fall [Unknown]
  - Anxiety [Unknown]
  - Joint injury [Unknown]
  - Balance disorder [Unknown]
  - Pain [Unknown]
  - Back disorder [Unknown]
  - Condition aggravated [Not Recovered/Not Resolved]

NARRATIVE: CASE EVENT DATE: 20180808
